FAERS Safety Report 11937831 (Version 1)
Quarter: 2016Q1

REPORT INFORMATION
  Report Type: Spontaneous
  Country: GB (occurrence: GB)
  Receive Date: 20160122
  Receipt Date: 20160122
  Transmission Date: 20160526
  Serious: Yes (Hospitalization)
  Sender: FDA-Public Use
  Company Number: GB-ACCORD-037184

PATIENT
  Age: 66 Year
  Sex: Female

DRUGS (3)
  1. VENLAFAXINE/VENLAFAXINE HYDROCHLORIDE [Concomitant]
     Indication: DEPRESSION
  2. QUETIAPINE [Suspect]
     Active Substance: QUETIAPINE
     Indication: DEPRESSION
  3. MIRTAZAPINE. [Concomitant]
     Active Substance: MIRTAZAPINE
     Indication: DEPRESSION

REACTIONS (2)
  - Abdominal distension [Unknown]
  - Constipation [Unknown]
